FAERS Safety Report 18454531 (Version 5)
Quarter: 2021Q3

REPORT INFORMATION
  Report Type: Spontaneous
  Country: JP (occurrence: JP)
  Receive Date: 20201102
  Receipt Date: 20210823
  Transmission Date: 20211014
  Serious: Yes (Death, Life-Threatening, Other)
  Sender: FDA-Public Use
  Company Number: JP-CELGENEUS-JPN-20201008289

PATIENT
  Age: 59 Year
  Sex: Male
  Weight: 56.4 kg

DRUGS (13)
  1. CYRAMZA [Suspect]
     Active Substance: RAMUCIRUMAB
     Indication: GASTRIC CANCER STAGE IV
  2. SULBACILLIN [Concomitant]
     Active Substance: AMPICILLIN SODIUM\SULBACTAM SODIUM
     Indication: PNEUMONITIS
     Dosage: 9 GRAM
     Route: 041
     Dates: start: 20200918, end: 20200923
  3. ABRAXANE [Suspect]
     Active Substance: PACLITAXEL
     Indication: GASTRIC CANCER STAGE IV
     Dosage: 130 MILLIGRAM
     Route: 041
     Dates: start: 20200915, end: 20200915
  4. CYRAMZA [Suspect]
     Active Substance: RAMUCIRUMAB
     Indication: GASTRIC CANCER
     Dosage: 400 MILLIGRAM
     Route: 041
     Dates: start: 20200908, end: 20200908
  5. SOLU?MEDROL [Concomitant]
     Active Substance: METHYLPREDNISOLONE SODIUM SUCCINATE
     Indication: PNEUMONITIS
     Dosage: 1000 MILLIGRAM
     Route: 041
     Dates: start: 20200926, end: 20200929
  6. OXYCODONE [Concomitant]
     Active Substance: OXYCODONE
     Route: 048
     Dates: start: 20200904, end: 20200923
  7. GRAN [Concomitant]
     Active Substance: FILGRASTIM
     Indication: PNEUMONITIS
     Route: 051
     Dates: start: 20200917
  8. ABRAXANE [Suspect]
     Active Substance: PACLITAXEL
     Indication: GASTRIC CANCER
     Dosage: 150 MILLIGRAM
     Route: 041
     Dates: start: 20200908, end: 20200908
  9. DALTEPARIN [Concomitant]
     Active Substance: DALTEPARIN
     Indication: DISSEMINATED INTRAVASCULAR COAGULATION
     Dosage: 4750 IU (INTERNATIONAL UNIT)
     Route: 041
     Dates: start: 20200825, end: 20200902
  10. TAZOPIPE [Concomitant]
     Active Substance: PIPERACILLIN SODIUM\TAZOBACTAM SODIUM
     Indication: PNEUMONITIS
     Dosage: 13.5 GRAM
     Route: 041
     Dates: start: 20200923, end: 20200930
  11. OXYCODONE [Concomitant]
     Active Substance: OXYCODONE
     Indication: CANCER PAIN
     Route: 048
     Dates: start: 20200221, end: 20200903
  12. RINDERON [Concomitant]
     Indication: LYMPHANGIOSIS CARCINOMATOSA
     Dosage: 3 MILLIGRAM
     Route: 048
     Dates: start: 20200817, end: 20200928
  13. ORGARAN [Concomitant]
     Active Substance: DANAPAROID SODIUM
     Indication: DISSEMINATED INTRAVASCULAR COAGULATION
     Dosage: 2500 IU (INTERNATIONAL UNIT)
     Route: 041
     Dates: start: 20200903, end: 20201023

REACTIONS (5)
  - Pneumonitis [Recovered/Resolved]
  - Pneumonia [Fatal]
  - Pyrexia [Unknown]
  - Acute respiratory distress syndrome [Fatal]
  - Platelet count decreased [Unknown]

NARRATIVE: CASE EVENT DATE: 20200911
